FAERS Safety Report 8473087-7 (Version None)
Quarter: 2012Q2

REPORT INFORMATION
  Report Type: 
  Country: None (occurrence: None)
  Receive Date: 20120627
  Receipt Date: 20120622
  Transmission Date: 20120825
  Serious: Yes (Other)
  Sender: FDA-Public Use
  Company Number: FR-ROCHE-1082100

PATIENT
  Age: 52 Year
  Sex: Female

DRUGS (1)
  1. MABTHERA [Suspect]
     Indication: NON-HODGKIN'S LYMPHOMA
     Route: 042
     Dates: start: 20111101

REACTIONS (4)
  - HYPOAESTHESIA [None]
  - VISUAL ACUITY REDUCED [None]
  - PRURITUS [None]
  - EYE IRRITATION [None]
